FAERS Safety Report 15368018 (Version 1)
Quarter: 2018Q3

REPORT INFORMATION
  Report Type: Spontaneous
  Country: US (occurrence: US)
  Receive Date: 20180910
  Receipt Date: 20180910
  Transmission Date: 20181010
  Serious: No
  Sender: FDA-Public Use
  Company Number: US-SUNOVION-2018SUN003423

PATIENT
  Age: 33 Year
  Sex: Male

DRUGS (2)
  1. LATUDA [Suspect]
     Active Substance: LURASIDONE HYDROCHLORIDE
     Indication: SCHIZOPHRENIA
     Dosage: 120 MG, UNK
     Route: 048
  2. LATUDA [Suspect]
     Active Substance: LURASIDONE HYDROCHLORIDE
     Indication: PSYCHOTIC DISORDER

REACTIONS (6)
  - Burning sensation [Unknown]
  - Drug administration error [Unknown]
  - Off label use [Unknown]
  - Chest pain [Unknown]
  - Blood pressure fluctuation [Unknown]
  - Muscle spasms [Unknown]
